FAERS Safety Report 7682861-6 (Version None)
Quarter: 2011Q3

REPORT INFORMATION
  Report Type: 
  Country: None (occurrence: None)
  Receive Date: 20110815
  Receipt Date: 20110803
  Transmission Date: 20111222
  Serious: Yes (Death)
  Sender: FDA-Public Use
  Company Number: JP-ROCHE-791626

PATIENT
  Sex: Female
  Weight: 40 kg

DRUGS (4)
  1. ETODOLAC [Concomitant]
     Route: 048
     Dates: start: 20101207, end: 20101211
  2. PACLITAXEL [Concomitant]
     Route: 042
     Dates: start: 20101116, end: 20101116
  3. CARBOPLATIN [Concomitant]
     Dosage: 5AUC
     Route: 041
     Dates: start: 20101116, end: 20101116
  4. AVASTIN [Suspect]
     Indication: LUNG ADENOCARCINOMA METASTATIC
     Route: 041
     Dates: start: 20101116, end: 20101116

REACTIONS (2)
  - CEREBRAL INFARCTION [None]
  - DISEASE PROGRESSION [None]
